FAERS Safety Report 8026847-0 (Version None)
Quarter: 2012Q1

REPORT INFORMATION
  Report Type: 
  Country: None (occurrence: None)
  Receive Date: 20120106
  Receipt Date: 20120103
  Transmission Date: 20120608
  Serious: No
  Sender: FDA-Public Use
  Company Number: US-PFIZER INC-2012001498

PATIENT
  Age: 58 Year
  Sex: Female
  Weight: 68.027 kg

DRUGS (3)
  1. HYDROCHLOROTHIAZIDE [Concomitant]
     Indication: HYPERTENSION
     Dosage: UNK
  2. EFFEXOR XR [Suspect]
     Indication: DEPRESSION
     Dosage: 37.5 MG, UNK
     Dates: start: 20100101
  3. EFFEXOR XR [Suspect]
     Dosage: UNK

REACTIONS (3)
  - THINKING ABNORMAL [None]
  - NEURALGIA [None]
  - WITHDRAWAL SYNDROME [None]
